FAERS Safety Report 24216326 (Version 7)
Quarter: 2025Q1

REPORT INFORMATION
  Report Type: Spontaneous
  Country: US (occurrence: US)
  Receive Date: 20240816
  Receipt Date: 20250122
  Transmission Date: 20250408
  Serious: Yes (Hospitalization, Other)
  Sender: GLAXOSMITHKLINE
  Company Number: US-GSK-US2024099215

PATIENT

DRUGS (8)
  1. TRELEGY ELLIPTA [Suspect]
     Active Substance: FLUTICASONE FUROATE\UMECLIDINIUM BROMIDE\VILANTEROL TRIFENATATE
     Indication: Asthma
     Dosage: 1 PUFF(S), QD
     Route: 055
     Dates: start: 20240101
  2. TRELEGY ELLIPTA [Suspect]
     Active Substance: FLUTICASONE FUROATE\UMECLIDINIUM BROMIDE\VILANTEROL TRIFENATATE
     Dosage: UNK, QOD
     Route: 055
  3. FLONASE [Concomitant]
     Active Substance: FLUTICASONE PROPIONATE
     Indication: Product used for unknown indication
     Dosage: 4 PUFF(S), QD
     Route: 045
  4. ASTELIN [Concomitant]
     Active Substance: AZELASTINE HYDROCHLORIDE
     Indication: Product used for unknown indication
     Dosage: 2 PUFF(S), BID, 0.1%
  5. EPIPEN [Concomitant]
     Active Substance: EPINEPHRINE
     Indication: Anaphylactic reaction
  6. NEURONTIN [Concomitant]
     Active Substance: GABAPENTIN
     Indication: Product used for unknown indication
     Route: 048
  7. NEURONTIN [Concomitant]
     Active Substance: GABAPENTIN
     Dosage: 1 DF, BID
     Route: 048
  8. MAGOX [Concomitant]
     Indication: Product used for unknown indication
     Dosage: 1 DF, QD
     Route: 048

REACTIONS (31)
  - Coronavirus test positive [Unknown]
  - Myelopathy [Unknown]
  - Asthma [Recovering/Resolving]
  - Pain [Unknown]
  - Vitamin D deficiency [Unknown]
  - Migraine [Unknown]
  - Spinal osteoarthritis [Unknown]
  - Fatigue [Unknown]
  - Obesity [Unknown]
  - Lumbar spinal stenosis [Unknown]
  - Spinal claudication [Unknown]
  - Sciatica [Unknown]
  - Seasonal allergy [Unknown]
  - Lumbar radiculopathy [Unknown]
  - Throat irritation [Unknown]
  - Dyspnoea exertional [Unknown]
  - Palpitations [Unknown]
  - Upper-airway cough syndrome [Unknown]
  - Rhinitis [Unknown]
  - Nausea [Unknown]
  - Paranasal sinus discomfort [Unknown]
  - Facial pain [Unknown]
  - Peripheral swelling [Unknown]
  - Back pain [Unknown]
  - Arthralgia [Unknown]
  - Skin warm [Unknown]
  - Dry skin [Unknown]
  - Acute sinusitis [Unknown]
  - Inappropriate schedule of product administration [Unknown]
  - Drug ineffective [Unknown]
  - Product dose omission issue [Unknown]

NARRATIVE: CASE EVENT DATE: 20240801
